FAERS Safety Report 9162592 (Version 2)
Quarter: 2013Q1

REPORT INFORMATION
  Report Type: Spontaneous
  Country: US (occurrence: None)
  Receive Date: 20130312
  Receipt Date: 20130327
  Transmission Date: 20140127
  Serious: Yes (Death)
  Sender: FDA-Public Use
  Company Number: FK201300715

PATIENT
  Age: 31 Year
  Sex: Male
  Weight: 151 kg

DRUGS (25)
  1. MIDAZOLAM HYDROCHLORIDE INJECTION (MIDAZOLAM HYDROCHLORIDE) (MIDAZOLAM HYDROCHLORIDE) [Suspect]
     Indication: PRODUCT USED FOR UNKNOWN INDICATION
     Route: 042
     Dates: start: 20130130, end: 20130131
  2. FENTANYL (FENTANYL) [Suspect]
     Indication: PRODUCT USED FOR UNKNOWN INDICATION
     Dates: start: 20130126, end: 20130131
  3. APAP [Concomitant]
  4. CHLORHEXIDINE (CHLORHEXIDINE) [Concomitant]
  5. CISATRACURIUM (CISATRACURIUM) (CISATRACURIUM) [Concomitant]
  6. DIPHENHYDRAMINE (DIPHENHYDRAMINE) (DIPHENHYRAMINE) [Concomitant]
  7. DOCUSATE (DOCUSATE) (DOCUSATE) [Concomitant]
  8. ENOXAPARIN (ENOXAPARIN) (ENOXAPARIN) [Concomitant]
  9. FAMOTIDINE (FAMOTIDINE) (FAMOTIDINE) [Concomitant]
  10. FENTANYL (FENTANYL) (FENTANYL) [Concomitant]
  11. FUROSEMIDE [Concomitant]
  12. HYDROCORTISONE (HYDROCORTISONE) (HYDROCORTISONE) [Concomitant]
  13. IBUPROFEN (IBUPROFEN) (IBUPROFEN) [Concomitant]
  14. INSULIN ASPART (INSULIN ASPART) (INSULIN ASPART) [Concomitant]
  15. IOPAMIDOL (IOPAMIDOL) (IOPAMIDOL) [Concomitant]
  16. DUONEB (COMBIVENT) (COMBIVENT) [Concomitant]
  17. MAGNESIUM SULFATE (MAGNESIUM SULFATE) (MAGNESIUM SULFATE) [Concomitant]
  18. MICAFUNGIN (MICAFUNGIN) [Concomitant]
  19. PHENYTOIN (PHENYTOIN) [Concomitant]
  20. PIPERACILLIN/TAZOBACTAM (PIPERACILLIN W/TAZOBACTAM) (PIPERACILLIN W/TAZOBACTAM) [Concomitant]
  21. KCI (POTASSIUM CHLORIDE) [Concomitant]
  22. PROPOFOL (PROPOFOL) (PROPOFOL) [Concomitant]
  23. SENNA (SENNA ALEXANDRINA) (SENNA ALEXANDRINA) [Concomitant]
  24. SODIUM CHLORIDE (SODIUM CHLORIDE) (SODIUM CHLORIDE) [Concomitant]
  25. VANCOMYCIN (VANCOMYCIN) (VANCOMYCIN) [Concomitant]

REACTIONS (6)
  - Pyrexia [None]
  - Infusion related reaction [None]
  - Product contamination [None]
  - Cardiac arrest [None]
  - Haemophilus test positive [None]
  - Pulseless electrical activity [None]
